FAERS Safety Report 10467590 (Version 6)
Quarter: 2015Q2

REPORT INFORMATION
  Report Type: Spontaneous
  Country: US (occurrence: US)
  Receive Date: 20140922
  Receipt Date: 20150519
  Transmission Date: 20150821
  Serious: Yes (Hospitalization, Other)
  Sender: FDA-Public Use
  Company Number: US-GLAXOSMITHKLINE-A1089206A

PATIENT

DRUGS (7)
  1. ZONISAMIDE. [Suspect]
     Active Substance: ZONISAMIDE
     Indication: EPILEPSY
     Dosage: UNK, TID
     Dates: start: 201307, end: 201403
  2. GABAPENTIN. [Suspect]
     Active Substance: GABAPENTIN
     Indication: SEIZURE
     Dosage: 1500 MG, QD
     Route: 048
     Dates: start: 201306, end: 201409
  3. CLONAZEPAM. [Suspect]
     Active Substance: CLONAZEPAM
     Indication: SEIZURE
     Dosage: 0.25 MG, BID
     Route: 048
     Dates: start: 201303, end: 201306
  4. LAMICTAL [Suspect]
     Active Substance: LAMOTRIGINE
     Indication: EPILEPSY
     Dosage: 150 MG, BID
     Route: 048
     Dates: start: 2012
  5. ONFI [Suspect]
     Active Substance: CLOBAZAM
     Indication: EPILEPSY
     Dosage: UNK UNK, BID
     Route: 048
     Dates: start: 201403
  6. LAMICTAL [Suspect]
     Active Substance: LAMOTRIGINE
     Dosage: 100 MG, UNK
  7. KEPPRA [Suspect]
     Active Substance: LEVETIRACETAM
     Indication: EPILEPSY
     Dosage: 500 MG, BID
     Route: 048
     Dates: start: 201412

REACTIONS (20)
  - Fall [Unknown]
  - Vomiting [Unknown]
  - Seizure [Unknown]
  - Tooth injury [Unknown]
  - Injury [Unknown]
  - Memory impairment [Unknown]
  - Myoclonic epilepsy [Unknown]
  - Decreased appetite [Unknown]
  - Decreased activity [Unknown]
  - Weight decreased [Unknown]
  - Nervous system disorder [Unknown]
  - Generalised tonic-clonic seizure [Unknown]
  - Pruritus [Unknown]
  - Abasia [Unknown]
  - Ageusia [Unknown]
  - Facial bones fracture [Recovered/Resolved]
  - Dysstasia [Unknown]
  - Scar [Unknown]
  - Hypersomnia [Unknown]
  - Ulcer [Unknown]

NARRATIVE: CASE EVENT DATE: 2012
